FAERS Safety Report 23264728 (Version 1)
Quarter: 2023Q4

REPORT INFORMATION
  Report Type: Spontaneous
  Country: ES (occurrence: ES)
  Receive Date: 20231206
  Receipt Date: 20231206
  Transmission Date: 20240109
  Serious: Yes (Life-Threatening, Hospitalization, Disabling, Other)
  Sender: FDA-Public Use
  Company Number: None

PATIENT

DRUGS (5)
  1. VALTREX [Suspect]
     Active Substance: VALACYCLOVIR HYDROCHLORIDE
     Indication: Keratitis
     Dosage: UNK UNK, TID 1000 MD / 8
     Route: 048
     Dates: start: 20231002, end: 20231014
  2. PANTOPRAZOLE SODIUM [Concomitant]
     Active Substance: PANTOPRAZOLE SODIUM
     Indication: Barrett^s oesophagus
     Dosage: 1 DF, QD 1 TABLET / 24 HOURS
     Route: 065
     Dates: start: 20110101
  3. TAMSULOSIN [Concomitant]
     Active Substance: TAMSULOSIN
     Indication: Benign prostatic hyperplasia
     Dosage: 1 DF, QD 1 TABLET / 24 H
     Route: 065
     Dates: start: 20140401
  4. FENOFIBRATE [Concomitant]
     Active Substance: FENOFIBRATE
     Indication: Hypertriglyceridaemia
     Dosage: 1 DF, QD 1 TABLET / 24 H
     Route: 065
     Dates: start: 20110701
  5. ROSUVASTATIN AUROVITAS [Concomitant]
     Indication: Hypercholesterolaemia
     Dosage: 1 DF, QD 1 TABLET / 24 H
     Route: 065
     Dates: start: 20120701

REACTIONS (1)
  - Pancreatitis acute [Recovering/Resolving]

NARRATIVE: CASE EVENT DATE: 20231016
